FAERS Safety Report 10254337 (Version 1)
Quarter: 2014Q2

REPORT INFORMATION
  Report Type: Report from Study
  Country: US (occurrence: US)
  Receive Date: 20140624
  Receipt Date: 20140624
  Transmission Date: 20141212
  Serious: Yes (Other)
  Sender: FDA-Public Use
  Company Number: US-ROCHE-1420878

PATIENT
  Age: 9 Year
  Sex: Male

DRUGS (3)
  1. NUTROPIN AQ [Suspect]
     Indication: HYPOPITUITARISM
     Route: 058
  2. SYNTHROID [Concomitant]
     Indication: HYPOPITUITARISM
     Route: 050
  3. SYNTHROID [Concomitant]
     Route: 050
     Dates: start: 20130822

REACTIONS (5)
  - Blood thyroid stimulating hormone increased [Unknown]
  - Diarrhoea [Recovered/Resolved]
  - Trichotillomania [Unknown]
  - Aspiration [Unknown]
  - Intestinal obstruction [Unknown]
